FAERS Safety Report 5297204-5 (Version None)
Quarter: 2007Q2

REPORT INFORMATION
  Report Type: 
  Country: None (occurrence: None)
  Receive Date: 20070416
  Receipt Date: 20070403
  Transmission Date: 20071010
  Serious: Yes (Hospitalization, Other)
  Sender: FDA-Public Use
  Company Number: GB-JNJFOC-20070400896

PATIENT
  Sex: Male
  Weight: 74 kg

DRUGS (13)
  1. REMICADE [Suspect]
     Indication: RHEUMATOID ARTHRITIS
     Route: 042
  2. METHOTREXATE [Concomitant]
  3. PREDNISONE TAB [Concomitant]
  4. ALFUZOSIN [Concomitant]
  5. CO-CODAMOL [Concomitant]
  6. FINASTERIDE [Concomitant]
  7. FLUOXETINE [Concomitant]
  8. FOLIC ACID [Concomitant]
  9. FRUSEMIDE [Concomitant]
  10. NITRAZEPAM [Concomitant]
  11. PERINDOPRIL ERBUMINE [Concomitant]
  12. SIMVASTATIN [Concomitant]
  13. ZOTON [Concomitant]

REACTIONS (1)
  - PROSTATIC DISORDER [None]
